FAERS Safety Report 17878885 (Version 1)
Quarter: 2020Q2

REPORT INFORMATION
  Report Type: Spontaneous
  Country: CN (occurrence: CN)
  Receive Date: 20200610
  Receipt Date: 20200610
  Transmission Date: 20200714
  Serious: Yes (Life-Threatening, Hospitalization, Other)
  Sender: FDA-Public Use
  Company Number: CN-ACCORD-184908

PATIENT
  Age: 29 Year
  Sex: Male

DRUGS (9)
  1. ESOMEPRAZOLE/ESOMEPRAZOLE MAGNESIUM/ESOMEPRAZOLE SODIUM [Concomitant]
     Active Substance: ESOMEPRAZOLE
  2. CICLOSPORIN [Suspect]
     Active Substance: CYCLOSPORINE
     Indication: IMMUNOSUPPRESSANT DRUG THERAPY
     Dosage: 75 MG EVERY MORNING AND 75 MG/100 MG ALTERNATING EVERY OTHER NIGHT
     Dates: start: 20181227
  3. VALSARTAN. [Concomitant]
     Active Substance: VALSARTAN
     Dosage: EVERY NIGHT
  4. FELODIPINE. [Concomitant]
     Active Substance: FELODIPINE
  5. METHYLPREDNISOLONE. [Suspect]
     Active Substance: METHYLPREDNISOLONE
     Indication: IMMUNOSUPPRESSANT DRUG THERAPY
     Dates: start: 20181227
  6. GLYCYRRHIZINATE POTASSIUM [Concomitant]
     Active Substance: GLYCYRRHIZIN
  7. METOPROLOL. [Concomitant]
     Active Substance: METOPROLOL
  8. ACETYLSALICYLIC ACID [Concomitant]
     Active Substance: ASPIRIN
  9. MYCOPHENOLIC ACID. [Suspect]
     Active Substance: MYCOPHENOLIC ACID
     Indication: IMMUNOSUPPRESSANT DRUG THERAPY
     Dates: start: 20181227

REACTIONS (2)
  - COVID-19 pneumonia [Recovered/Resolved]
  - SARS-CoV-2 test positive [Recovered/Resolved]

NARRATIVE: CASE EVENT DATE: 20200204
